FAERS Safety Report 8217466-1 (Version None)
Quarter: 2012Q1

REPORT INFORMATION
  Report Type: 
  Country: None (occurrence: None)
  Receive Date: 20120314
  Receipt Date: 20120305
  Transmission Date: 20120608
  Serious: Yes (Other)
  Sender: FDA-Public Use
  Company Number: AUR-APL-2012-01365

PATIENT
  Age: 78 Year
  Sex: Female
  Weight: 54 kg

DRUGS (11)
  1. LISINOPRIL [Suspect]
     Indication: PRODUCT USED FOR UNKNOWN INDICATION
  2. FELDENE [Suspect]
     Indication: PRODUCT USED FOR UNKNOWN INDICATION
  3. DIOVAN [Concomitant]
  4. ASPIRIN [Concomitant]
  5. GARLIC (ALLIUM SATIVUM) [Concomitant]
  6. LIPITOR [Suspect]
     Indication: BLOOD CHOLESTEROL INCREASED
     Dosage: 5 MG (5 MG,1 IN 1 D),ORAL
     Route: 048
     Dates: end: 20120101
  7. OXYCODONE HCL [Suspect]
     Indication: PRODUCT USED FOR UNKNOWN INDICATION
  8. CALCIUM CARBONATE [Concomitant]
  9. VITAMIN E [Concomitant]
  10. ERYTHROMYCIN [Suspect]
     Indication: PRODUCT USED FOR UNKNOWN INDICATION
  11. ATORVASTATIN CALCIUM [Suspect]
     Indication: BLOOD CHOLESTEROL INCREASED
     Dosage: 5 MG (5 MG,1 IN 1 D),ORAL
     Route: 048
     Dates: start: 20120101

REACTIONS (10)
  - CARDIAC DISORDER [None]
  - HYPERSENSITIVITY [None]
  - FEELING ABNORMAL [None]
  - DIZZINESS [None]
  - VOMITING [None]
  - RASH [None]
  - HEADACHE [None]
  - MALAISE [None]
  - IMPATIENCE [None]
  - ASTHENIA [None]
